FAERS Safety Report 5072919-2 (Version None)
Quarter: 2006Q3

REPORT INFORMATION
  Report Type: 
  Country: None (occurrence: None)
  Receive Date: 20060802
  Receipt Date: 20060718
  Transmission Date: 20061208
  Serious: Yes (Death, Life-Threatening, Hospitalization)
  Sender: FDA-Public Use
  Company Number: GXKR2006GB04122

PATIENT
  Sex: Male
  Weight: 112 kg

DRUGS (6)
  1. CEFTAZIDIME [Suspect]
     Indication: NEUTROPENIC SEPSIS
     Dosage: 1 G, TID, INTRAVENTRIC
     Route: 050
  2. CIPROFLOXACIN [Suspect]
     Indication: NEUTROPENIC SEPSIS
     Dosage: 500 MG, BID, INTRAVENOUS
     Route: 042
     Dates: start: 20060317
  3. MEROPENEM (MEROPENEM) [Suspect]
     Indication: NEUTROPENIC SEPSIS
     Dosage: 1 G, TID, INTRAVENOUS
     Route: 042
     Dates: start: 20060305
  4. RITUXIMAB (RITUXIMAB) [Suspect]
     Indication: NON-HODGKIN'S LYMPHOMA STAGE IV
     Dates: start: 20060209, end: 20060209
  5. YTTRIUM (90 Y)(YTTRIUM (90Y)) [Suspect]
     Indication: NON-HODGKIN'S LYMPHOMA STAGE IV
     Dosage: INTRAVENOUS
     Route: 042
     Dates: start: 20060209, end: 20060209
  6. ZEVALIN [Suspect]
     Indication: NON-HODGKIN'S LYMPHOMA STAGE IV
     Dosage: INTRAVENOUS
     Route: 042
     Dates: start: 20060209, end: 20060209

REACTIONS (1)
  - STEVENS-JOHNSON SYNDROME [None]
